FAERS Safety Report 6519603-3 (Version None)
Quarter: 2009Q4

REPORT INFORMATION
  Report Type: 
  Country: None (occurrence: None)
  Receive Date: 20091228
  Receipt Date: 20091217
  Transmission Date: 20100525
  Serious: Yes (Hospitalization, Other)
  Sender: FDA-Public Use
  Company Number: IT-BAXTER-2009BH017538

PATIENT
  Age: 67 Year
  Sex: Female

DRUGS (11)
  1. ENDOXAN BAXTER [Suspect]
     Indication: DISSEMINATED LARGE CELL LYMPHOMA
     Route: 042
     Dates: start: 20091014, end: 20091014
  2. ENDOXAN BAXTER [Suspect]
     Route: 042
     Dates: start: 20091125, end: 20091125
  3. MABTHERA [Suspect]
     Indication: DISSEMINATED LARGE CELL LYMPHOMA
     Route: 042
     Dates: start: 20091013, end: 20091013
  4. MABTHERA [Suspect]
     Route: 042
     Dates: start: 20091123, end: 20091123
  5. FARMORUBICINA [Suspect]
     Indication: DISSEMINATED LARGE CELL LYMPHOMA
     Route: 042
     Dates: start: 20091014, end: 20091014
  6. FARMORUBICINA [Suspect]
     Route: 042
     Dates: start: 20091125, end: 20091125
  7. VINCRISTINE SULFATE [Suspect]
     Indication: DISSEMINATED LARGE CELL LYMPHOMA
     Route: 042
     Dates: start: 20091014, end: 20091014
  8. VINCRISTINE SULFATE [Suspect]
     Route: 042
     Dates: start: 20091125, end: 20091125
  9. DELTACORTENE [Suspect]
     Indication: DISSEMINATED LARGE CELL LYMPHOMA
     Route: 048
     Dates: start: 20091014, end: 20091018
  10. ATENOLOL [Concomitant]
     Indication: DRUG USE FOR UNKNOWN INDICATION
     Route: 048
     Dates: start: 20050101, end: 20091021
  11. CATAPRESSAN TTS [Concomitant]
     Indication: DRUG USE FOR UNKNOWN INDICATION
     Route: 062
     Dates: start: 20050101, end: 20091021

REACTIONS (11)
  - ANAEMIA [None]
  - DEHYDRATION [None]
  - DIARRHOEA [None]
  - DISEASE RECURRENCE [None]
  - FEBRILE NEUTROPENIA [None]
  - HAEMORRHAGE [None]
  - HYPOTENSION [None]
  - NEUROLOGICAL SYMPTOM [None]
  - STAPHYLOCOCCAL SEPSIS [None]
  - STOMATITIS [None]
  - THROMBOCYTOPENIA [None]
